FAERS Safety Report 6772338-4 (Version None)
Quarter: 2010Q2

REPORT INFORMATION
  Report Type: 
  Country: None (occurrence: None)
  Receive Date: 20100616
  Receipt Date: 20090814
  Transmission Date: 20101027
  Serious: No
  Sender: FDA-Public Use
  Company Number: US-ASTRAZENECA-2009SE08115

PATIENT
  Age: 66 Year
  Sex: Female
  Weight: 88.5 kg

DRUGS (3)
  1. PULMICORT FLEXHALER [Suspect]
     Indication: ASTHMA
     Dosage: 720 MCG BID
     Route: 055
  2. PULMICORT FLEXHALER [Suspect]
     Dosage: 360 MCG DAILY
     Route: 055
  3. BENECAR [Concomitant]
     Indication: HYPERTENSION

REACTIONS (5)
  - ABDOMINAL DISCOMFORT [None]
  - CHEST PAIN [None]
  - HYPERHIDROSIS [None]
  - VOMITING [None]
  - WEIGHT INCREASED [None]
